FAERS Safety Report 9006547 (Version 1)
Quarter: 2013Q1

REPORT INFORMATION
  Report Type: Spontaneous
  Country: AU (occurrence: AU)
  Receive Date: 20130110
  Receipt Date: 20130110
  Transmission Date: 20140127
  Serious: No
  Sender: FDA-Public Use
  Company Number: PHHY2013AU002208

PATIENT
  Sex: Male

DRUGS (7)
  1. TASIGNA [Suspect]
     Indication: CHRONIC MYELOID LEUKAEMIA
     Dosage: 300 MG, QD
     Route: 048
     Dates: start: 20121101
  2. NEXIUM 1-2-3 [Concomitant]
  3. NIZATIDINE [Concomitant]
  4. ROHYPNOL [Concomitant]
     Indication: INSOMNIA
  5. ENOXAPARIN [Concomitant]
     Indication: PULMONARY EMBOLISM
  6. MORPHINE [Concomitant]
     Indication: BACK PAIN
  7. MOGADON [Concomitant]
     Indication: INSOMNIA

REACTIONS (5)
  - Dry eye [Unknown]
  - Insomnia [Unknown]
  - Weight decreased [Unknown]
  - Arthralgia [Unknown]
  - Sexual dysfunction [Recovered/Resolved]
